FAERS Safety Report 9772758 (Version 2)
Quarter: 2014Q1

REPORT INFORMATION
  Report Type: Spontaneous
  Country: GB (occurrence: GB)
  Receive Date: 20131219
  Receipt Date: 20140116
  Transmission Date: 20141002
  Serious: Yes (Hospitalization, Other)
  Sender: FDA-Public Use
  Company Number: GB-TEVA-450869ISR

PATIENT
  Age: 65 Year
  Sex: Male

DRUGS (2)
  1. TAMSULOSIN [Suspect]
     Indication: LOWER URINARY TRACT SYMPTOMS
     Dosage: UNKNOWN/D
     Route: 065
  2. TAMSULOSIN [Suspect]
     Indication: BENIGN PROSTATIC HYPERPLASIA
     Dosage: UNKNOWN/D
     Route: 065

REACTIONS (2)
  - Surgery [Unknown]
  - Drug ineffective [Unknown]
